FAERS Safety Report 7069028-X (Version None)
Quarter: 2010Q4

REPORT INFORMATION
  Report Type: 
  Country: None (occurrence: None)
  Receive Date: 20101028
  Receipt Date: 20101019
  Transmission Date: 20110411
  Serious: Yes (Hospitalization)
  Sender: FDA-Public Use
  Company Number: US-SANOFI-AVENTIS-2010SA064556

PATIENT
  Sex: Female

DRUGS (1)
  1. PLAVIX [Suspect]
     Route: 048
     Dates: start: 20061101

REACTIONS (3)
  - POST PROCEDURAL HAEMORRHAGE [None]
  - UNEVALUABLE EVENT [None]
  - VASCULAR OCCLUSION [None]
